FAERS Safety Report 5668895-1 (Version None)
Quarter: 2008Q1

REPORT INFORMATION
  Report Type: 
  Country: None (occurrence: None)
  Receive Date: 20080317
  Receipt Date: 20080313
  Transmission Date: 20080703
  Serious: Yes (Death, Hospitalization, Other)
  Sender: FDA-Public Use
  Company Number: US-BRISTOL-MYERS SQUIBB COMPANY-13961396

PATIENT
  Age: 82 Year
  Sex: Male

DRUGS (2)
  1. ABILIFY [Suspect]
     Dosage: INITIAL DOSE WAS 10 MG STARTED ON 15-MAR-07 INCREASED TO 15 MG ON 30-MAR-07
     Dates: start: 20070315, end: 20070404
  2. INSULIN [Concomitant]

REACTIONS (7)
  - ABNORMAL BEHAVIOUR [None]
  - AGITATION [None]
  - ANXIETY [None]
  - CONFUSIONAL STATE [None]
  - DEATH [None]
  - FALL [None]
  - LOWER LIMB FRACTURE [None]
